FAERS Safety Report 7970974-0 (Version None)
Quarter: 2011Q4

REPORT INFORMATION
  Report Type: 
  Country: None (occurrence: None)
  Receive Date: 20111212
  Receipt Date: 20111201
  Transmission Date: 20120403
  Serious: Yes (Death)
  Sender: FDA-Public Use
  Company Number: US-BRISTOL-MYERS SQUIBB COMPANY-14213078

PATIENT
  Age: 37 Year
  Sex: Male

DRUGS (7)
  1. DILTIAZEM HCL [Suspect]
     Route: 048
  2. OLMESARTAN MEDOXOMIL [Suspect]
     Route: 048
  3. FOSINOPRIL SODIUM [Suspect]
     Route: 048
  4. CELECOXIB [Suspect]
     Route: 048
  5. PROPOXYPHENE HYDROCHLORIDE [Suspect]
     Route: 048
  6. ACETAMINOPHEN [Suspect]
     Route: 048
  7. RAMIPRIL [Suspect]
     Route: 048

REACTIONS (1)
  - COMPLETED SUICIDE [None]
